FAERS Safety Report 21971871 (Version 1)
Quarter: 2023Q1

REPORT INFORMATION
  Report Type: Spontaneous
  Country: BR (occurrence: BR)
  Receive Date: 20230209
  Receipt Date: 20230209
  Transmission Date: 20230418
  Serious: Yes (Other)
  Sender: FDA-Public Use
  Company Number: BR-002147023-NVSC2023BR025398

PATIENT
  Sex: Female

DRUGS (2)
  1. AMLODIPINE\VALSARTAN [Suspect]
     Active Substance: AMLODIPINE\VALSARTAN
     Indication: Product used for unknown indication
     Dosage: UNK (28 TABLETS)
     Route: 065
  2. AMLODIPINE\VALSARTAN [Suspect]
     Active Substance: AMLODIPINE\VALSARTAN
     Dosage: UNK (28 TABLETS)
     Route: 065

REACTIONS (3)
  - Hypertension [Recovered/Resolved]
  - Emotional distress [Recovered/Resolved]
  - Product packaging quantity issue [Unknown]
